FAERS Safety Report 4669054-1 (Version None)
Quarter: 2005Q2

REPORT INFORMATION
  Report Type: 
  Country: None (occurrence: None)
  Receive Date: 20050519
  Receipt Date: 20050512
  Transmission Date: 20051028
  Serious: Yes (Hospitalization)
  Sender: FDA-Public Use
  Company Number: 2005073188

PATIENT
  Age: 72 Year
  Sex: Male

DRUGS (5)
  1. TORVAST (ATORVASTATIN) [Suspect]
     Indication: ILL-DEFINED DISORDER
     Dosage: 40 MG (1 IN 1 D)
  2. ANTIHYPERTENSIVES (ANTIHYPERTENSIVES) [Suspect]
     Indication: ILL-DEFINED DISORDER
  3. CALCIUM CHANNEL BLOCKERS (CALCIUM CHANNEL BLOCKERS) [Suspect]
     Indication: ILL-DEFINED DISORDER
  4. DIURETICS (DIURETICS) [Suspect]
     Indication: ILL-DEFINED DISORDER
  5. ACE INHIBITOR NOS [Concomitant]

REACTIONS (1)
  - LIVER DISORDER [None]
